FAERS Safety Report 18514678 (Version 1)
Quarter: 2020Q4

REPORT INFORMATION
  Report Type: Spontaneous
  Country: US (occurrence: US)
  Receive Date: 20201117
  Receipt Date: 20201117
  Transmission Date: 20210114
  Serious: No
  Sender: FDA-Public Use
  Company Number: US-009507513-2010USA009378

PATIENT
  Age: 46 Year
  Sex: Male

DRUGS (2)
  1. KEYTRUDA [Suspect]
     Active Substance: PEMBROLIZUMAB
     Indication: PHARYNGEAL NEOPLASM
     Dosage: 200MG EVERY 21 DAYS
     Route: 042
     Dates: start: 201703
  2. KEYTRUDA [Suspect]
     Active Substance: PEMBROLIZUMAB
     Dosage: 200MG EVERY 6 WEEKS
     Route: 042
     Dates: start: 201703

REACTIONS (7)
  - Inappropriate schedule of product administration [Unknown]
  - Ageusia [Not Recovered/Not Resolved]
  - Aptyalism [Not Recovered/Not Resolved]
  - Product use in unapproved indication [Unknown]
  - Decreased appetite [Not Recovered/Not Resolved]
  - Visual impairment [Not Recovered/Not Resolved]
  - Fatigue [Not Recovered/Not Resolved]

NARRATIVE: CASE EVENT DATE: 201703
